FAERS Safety Report 6826022-9 (Version None)
Quarter: 2010Q3

REPORT INFORMATION
  Report Type: 
  Country: None (occurrence: None)
  Receive Date: 20100707
  Receipt Date: 20100707
  Transmission Date: 20110219
  Serious: Yes (Hospitalization, Disabling)
  Sender: FDA-Public Use
  Company Number: None

PATIENT
  Age: 65 Year
  Sex: Female
  Weight: 72.5755 kg

DRUGS (1)
  1. LIPITOR [Suspect]
     Indication: LOW DENSITY LIPOPROTEIN INCREASED
     Dosage: 80 MG DAILY ORAL
     Route: 048
     Dates: start: 20090701, end: 20091001

REACTIONS (4)
  - DIPLEGIA [None]
  - MONOPLEGIA [None]
  - PELVIC PAIN [None]
  - POLYMYALGIA RHEUMATICA [None]
